FAERS Safety Report 16678209 (Version 1)
Quarter: 2019Q3

REPORT INFORMATION
  Report Type: Spontaneous
  Country: US (occurrence: US)
  Receive Date: 20190806
  Receipt Date: 20190806
  Transmission Date: 20191004
  Serious: Yes (Other)
  Sender: FDA-Public Use
  Company Number: None

PATIENT
  Age: 3 Year
  Sex: Female

DRUGS (1)
  1. MULTIVITAMIN WITH FLUORIDE [Suspect]
     Active Substance: .ALPHA.-TOCOPHEROL\.ALPHA.-TOCOPHEROL ACETATE\.ALPHA.-TOCOPHEROL ACETATE, DL-\ASCORBIC ACID\CHOLECALCIFEROL\COBALAMIN\CYANOCOBALAMIN\FLUORIDE ION\FOLIC ACID\NIACIN\NIACINAMIDE\PYRIDOXINE\PYRIDOXINE HYDROCHLORIDE\RIBOFLAVIN\SODIUM ASCORBATE\SODIUM FLUORIDE\THIAMINE\THIAMINE MONONITRATE\VITAMIN A\VITA

REACTIONS (1)
  - Hypersensitivity [None]

NARRATIVE: CASE EVENT DATE: 20190804
